FAERS Safety Report 20420701 (Version 1)
Quarter: 2022Q1

REPORT INFORMATION
  Report Type: Spontaneous
  Country: US (occurrence: US)
  Receive Date: 20220203
  Receipt Date: 20220203
  Transmission Date: 20220423
  Serious: Yes (Other)
  Sender: FDA-Public Use
  Company Number: US-SA-2022SA025698

PATIENT
  Age: 61 Year
  Sex: Female

DRUGS (4)
  1. AFLIBERCEPT [Suspect]
     Active Substance: AFLIBERCEPT
     Indication: Age-related macular degeneration
     Dosage: [2 MG/0.05ML]
     Route: 031
  2. AFLIBERCEPT [Suspect]
     Active Substance: AFLIBERCEPT
     Dosage: SECOND TREATMENT
  3. BEVACIZUMAB [Concomitant]
     Active Substance: BEVACIZUMAB
     Indication: Age-related macular degeneration
     Dosage: [1.25 MG/0.05ML]
     Route: 031
  4. BEVACIZUMAB [Concomitant]
     Active Substance: BEVACIZUMAB
     Dosage: [1.25 MG/0.05ML]
     Route: 031

REACTIONS (5)
  - Detachment of retinal pigment epithelium [Recovering/Resolving]
  - Visual impairment [Recovering/Resolving]
  - Subretinal fluid [Recovering/Resolving]
  - Drug ineffective [Recovering/Resolving]
  - Condition aggravated [Recovering/Resolving]
